FAERS Safety Report 7078409-X (Version None)
Quarter: 2010Q4

REPORT INFORMATION
  Report Type: 
  Country: None (occurrence: None)
  Receive Date: 20101101
  Receipt Date: 20101101
  Transmission Date: 20110411
  Serious: No
  Sender: FDA-Public Use
  Company Number: None

PATIENT
  Age: 72 Year
  Sex: Female
  Weight: 61.2356 kg

DRUGS (4)
  1. ZOLPIDEM [Suspect]
     Indication: INITIAL INSOMNIA
     Dosage: ONE EVERY 3 OR 4 DAYS
     Dates: start: 20100101, end: 20100101
  2. ZOLPIDEM [Suspect]
     Indication: INSOMNIA
     Dosage: ONE EVERY 3 OR 4 DAYS
     Dates: start: 20100101, end: 20100101
  3. ZOLPIDEM [Suspect]
     Indication: INITIAL INSOMNIA
     Dosage: ONE EVERY 3 OR 4 DAYS
     Dates: start: 19970101, end: 20101030
  4. ZOLPIDEM [Suspect]
     Indication: INSOMNIA
     Dosage: ONE EVERY 3 OR 4 DAYS
     Dates: start: 19970101, end: 20101030

REACTIONS (2)
  - DISORIENTATION [None]
  - MEMORY IMPAIRMENT [None]
